FAERS Safety Report 22272950 (Version 1)
Quarter: 2023Q2

REPORT INFORMATION
  Report Type: Spontaneous
  Country: ES (occurrence: ES)
  Receive Date: 20230502
  Receipt Date: 20230502
  Transmission Date: 20230722
  Serious: Yes (Other)
  Sender: FDA-Public Use
  Company Number: None

PATIENT
  Age: 44 Year
  Sex: Female

DRUGS (4)
  1. EVEROLIMUS [Suspect]
     Active Substance: EVEROLIMUS
     Indication: Invasive ductal breast carcinoma
     Dosage: 10 MG, QD
     Route: 048
     Dates: start: 20221114, end: 20221130
  2. EVEROLIMUS [Suspect]
     Active Substance: EVEROLIMUS
     Dosage: 5 MG, QD
     Route: 048
     Dates: start: 20221207, end: 20221222
  3. EVEROLIMUS [Suspect]
     Active Substance: EVEROLIMUS
     Dosage: 0.15 MG, ( Y 0.3 MG)
     Route: 048
     Dates: start: 20230124, end: 20230124
  4. EXEMESTANE [Concomitant]
     Active Substance: EXEMESTANE
     Indication: Product used for unknown indication
     Dosage: UNK
     Route: 065
     Dates: start: 20221114

REACTIONS (4)
  - Conjunctivitis [Recovered/Resolved]
  - Nocturnal dyspnoea [Recovered/Resolved]
  - Eczema [Recovered/Resolved]
  - Oedema peripheral [Recovered/Resolved]

NARRATIVE: CASE EVENT DATE: 20221130
